FAERS Safety Report 9249736 (Version 1)
Quarter: 2013Q2

REPORT INFORMATION
  Report Type: Spontaneous
  Country: IT (occurrence: IT)
  Receive Date: 20130423
  Receipt Date: 20130423
  Transmission Date: 20140414
  Serious: Yes (Hospitalization)
  Sender: FDA-Public Use
  Company Number: IT-TEVA-399181ISR

PATIENT
  Age: 64 Year
  Sex: Female

DRUGS (9)
  1. IBUPROFEN [Suspect]
     Indication: SCIATICA
     Dosage: 600 MILLIGRAM DAILY;
     Route: 048
     Dates: start: 20130225, end: 20130303
  2. ARTROSILENE [Suspect]
     Indication: SCIATICA
     Dosage: 320 MILLIGRAM DAILY;
     Route: 042
     Dates: start: 20130225, end: 20130303
  3. MEDROL [Concomitant]
  4. METHOTREXATE [Concomitant]
  5. SELOKEN [Concomitant]
  6. COTAREG [Concomitant]
  7. CARDIOASPIRIN [Concomitant]
  8. SIMVASTATINA [Concomitant]
  9. ORENCIA [Concomitant]

REACTIONS (1)
  - Acute myocardial infarction [Recovered/Resolved]
